FAERS Safety Report 4846196-9 (Version None)
Quarter: 2005Q4

REPORT INFORMATION
  Report Type: 
  Country: None (occurrence: None)
  Receive Date: 20051206
  Receipt Date: 20051130
  Transmission Date: 20060501
  Serious: Yes (Death, Hospitalization)
  Sender: FDA-Public Use
  Company Number: US-MERCK-0512USA00359

PATIENT
  Age: 66 Year
  Sex: Female
  Weight: 66 kg

DRUGS (9)
  1. VIOXX [Suspect]
     Indication: ARTHRALGIA
     Route: 048
     Dates: start: 20010412, end: 20031025
  2. EVISTA [Concomitant]
     Route: 065
  3. LEVOXYL [Concomitant]
     Route: 065
  4. NORTRIPTYLINE [Concomitant]
     Route: 065
  5. DYPHYLLINE [Concomitant]
     Route: 065
  6. [THERAPY UNSPECIFIED] [Concomitant]
     Route: 065
  7. SINGULAIR [Concomitant]
     Route: 065
  8. AVALIDE [Concomitant]
     Route: 065
  9. [THERAPY UNSPECIFIED] [Concomitant]
     Route: 065

REACTIONS (9)
  - CHEST PAIN [None]
  - DYSPNOEA [None]
  - MYOCARDIAL INFARCTION [None]
  - PALPITATIONS [None]
  - SINUS TACHYCARDIA [None]
  - SUPRAVENTRICULAR EXTRASYSTOLES [None]
  - SUPRAVENTRICULAR TACHYCARDIA [None]
  - THYROID NEOPLASM [None]
  - VENTRICULAR EXTRASYSTOLES [None]
